FAERS Safety Report 7480803-X (Version None)
Quarter: 2011Q2

REPORT INFORMATION
  Report Type: 
  Country: None (occurrence: None)
  Receive Date: 20110516
  Receipt Date: 20110509
  Transmission Date: 20111010
  Serious: Yes (Hospitalization, Other)
  Sender: FDA-Public Use
  Company Number: US-TEVA-280787USA

PATIENT
  Age: 53 Year
  Sex: Female

DRUGS (1)
  1. DOBUTAMINE HCL [Suspect]

REACTIONS (1)
  - CEREBRAL VASOCONSTRICTION [None]
